FAERS Safety Report 12214510 (Version 3)
Quarter: 2016Q2

REPORT INFORMATION
  Report Type: Spontaneous
  Country: CA (occurrence: CA)
  Receive Date: 20160328
  Receipt Date: 20160512
  Transmission Date: 20160815
  Serious: Yes (Death, Hospitalization, Other)
  Sender: FDA-Public Use
  Company Number: CA-009507513-1603CAN012008

PATIENT
  Age: 38 Year
  Sex: Female

DRUGS (2)
  1. INVANZ [Suspect]
     Active Substance: ERTAPENEM SODIUM
     Indication: SPLENIC ABSCESS
  2. INVANZ [Suspect]
     Active Substance: ERTAPENEM SODIUM
     Indication: LIVER ABSCESS
     Dosage: 1 G, QD
     Route: 042
     Dates: start: 20151103, end: 2016

REACTIONS (4)
  - Immune system disorder [Fatal]
  - Aplastic anaemia [Unknown]
  - Adverse event [Unknown]
  - Speech disorder [Unknown]

NARRATIVE: CASE EVENT DATE: 2016
